FAERS Safety Report 6300664-1 (Version None)
Quarter: 2009Q3

REPORT INFORMATION
  Report Type: 
  Country: None (occurrence: None)
  Receive Date: 20090805
  Receipt Date: 20090723
  Transmission Date: 20100115
  Serious: Yes (Other)
  Sender: FDA-Public Use
  Company Number: US-1170390

PATIENT
  Age: 79 Year
  Sex: Male
  Weight: 74.8435 kg

DRUGS (15)
  1. ISOPTO CARBACHOL 3 % OPHTHALMIC SOLUTION [Suspect]
     Indication: INTRAOCULAR PRESSURE DECREASED
     Dosage: 1 GTT IMMEDIATELY POST-OPHTHALMIC
     Route: 047
     Dates: start: 20090513, end: 20090513
  2. VERSED [Concomitant]
  3. LIDOCAINE HYDROCHLORIDE [Concomitant]
  4. BSS [Concomitant]
  5. FENTANYL [Concomitant]
  6. XYLOCAINE [Concomitant]
  7. EPINEPHRINE [Concomitant]
  8. DUOVISC [Concomitant]
  9. PROPOFOL [Concomitant]
  10. MYDRIACYL [Concomitant]
  11. CYCLOGYL [Concomitant]
  12. ACULAR [Concomitant]
  13. ZYMAR [Concomitant]
  14. AK-DILATE [Concomitant]
  15. TETRACAINE HYDROCHLORIDE [Concomitant]

REACTIONS (2)
  - BLOOD PRESSURE DECREASED [None]
  - HEART RATE DECREASED [None]
